FAERS Safety Report 19392914 (Version 1)
Quarter: 2021Q2

REPORT INFORMATION
  Report Type: Spontaneous
  Country: US (occurrence: US)
  Receive Date: 20210608
  Receipt Date: 20210608
  Transmission Date: 20210717
  Serious: Yes (Other)
  Sender: FDA-Public Use
  Company Number: None

PATIENT
  Age: 73 Year
  Sex: Female
  Weight: 64.86 kg

DRUGS (8)
  1. LASIX [Concomitant]
     Active Substance: FUROSEMIDE
  2. POTASSIUM CHLORIDE. [Concomitant]
     Active Substance: POTASSIUM CHLORIDE
  3. NSAIDS ARTHRITIS PAIN [Concomitant]
  4. GASTRIC UPSET [Concomitant]
  5. DIGITEK [Suspect]
     Active Substance: DIGOXIN
     Indication: ATRIAL FIBRILLATION
     Dosage: ?          QUANTITY:1 DF DOSAGE FORM;?
     Route: 048
     Dates: start: 20201029, end: 20201106
  6. DIGOXIN. [Concomitant]
     Active Substance: DIGOXIN
  7. BABY ASPIRIN [Concomitant]
     Active Substance: ASPIRIN
  8. ALLERGIES [Concomitant]

REACTIONS (4)
  - Drug ineffective [None]
  - Tachycardia [None]
  - Product quality issue [None]
  - Atrial fibrillation [None]

NARRATIVE: CASE EVENT DATE: 20201029
